FAERS Safety Report 10164656 (Version 1)
Quarter: 2014Q2

REPORT INFORMATION
  Report Type: Spontaneous
  Country: US (occurrence: US)
  Receive Date: 20140510
  Receipt Date: 20140510
  Transmission Date: 20141212
  Serious: No
  Sender: FDA-Public Use
  Company Number: US-BRISTOL-MYERS SQUIBB COMPANY-20156022

PATIENT
  Age: 60 Year
  Sex: Male
  Weight: 79.82 kg

DRUGS (3)
  1. BYDUREON [Suspect]
     Indication: TYPE 2 DIABETES MELLITUS
     Dates: start: 201309
  2. METFORMIN [Suspect]
     Dosage: 1000(UNITS NOS).
  3. LEVEMIR [Suspect]

REACTIONS (3)
  - Blood glucose increased [Unknown]
  - Drug dose omission [Unknown]
  - Product quality issue [Unknown]
